FAERS Safety Report 11254818 (Version 1)
Quarter: 2015Q2

REPORT INFORMATION
  Report Type: Report from Study
  Country: US (occurrence: None)
  Receive Date: 20150617
  Receipt Date: 20150617
  Transmission Date: 20150821
  Serious: No
  Sender: FDA-Public Use
  Company Number: 2014TASUS000618

PATIENT
  Age: 40 Year
  Sex: Male
  Weight: 72.6 kg

DRUGS (8)
  1. HETLIOZ [Suspect]
     Active Substance: TASIMELTEON
     Indication: BLINDNESS
     Dates: start: 20141006
  2. METOPROLOL (METOPROLOL TARTRATE) [Concomitant]
     Active Substance: METOPROLOL TARTRATE
  3. IBUPROFEN. [Concomitant]
     Active Substance: IBUPROFEN
  4. KEPPRA [Concomitant]
     Active Substance: LEVETIRACETAM
  5. AMBIEN [Concomitant]
     Active Substance: ZOLPIDEM TARTRATE
  6. HETLIOZ [Suspect]
     Active Substance: TASIMELTEON
     Indication: CIRCADIAN RHYTHM SLEEP DISORDER
     Dates: start: 20141006
  7. LORAZEPAM. [Concomitant]
     Active Substance: LORAZEPAM
  8. OXYCODONE /ACETAMINOPHEN (OXYCODONE HYDROCHLORIDE, PARACETAMOL) [Concomitant]

REACTIONS (2)
  - Intentional overdose [None]
  - Drug ineffective [None]

NARRATIVE: CASE EVENT DATE: 20141121
